FAERS Safety Report 4486719-5 (Version None)
Quarter: 2004Q4

REPORT INFORMATION
  Report Type: 
  Country: None (occurrence: None)
  Receive Date: 20041027
  Receipt Date: 20040922
  Transmission Date: 20050328
  Serious: Yes (Death, Life-Threatening, Hospitalization)
  Sender: FDA-Public Use
  Company Number: PHBS2004JP12675

PATIENT
  Age: 27 Year
  Sex: Female
  Weight: 69 kg

DRUGS (7)
  1. TEGRETOL [Suspect]
     Indication: CONVULSION
     Dosage: 100 MG, BID
     Route: 048
     Dates: start: 20031010, end: 20031014
  2. TEGRETOL [Suspect]
     Dosage: 100 MG/DAY
     Route: 048
     Dates: start: 20031015, end: 20031018
  3. ALEVIATIN [Suspect]
     Indication: CONVULSION
     Dosage: 250 MG/DAY
     Route: 042
     Dates: start: 20030930, end: 20031001
  4. ALEVIATIN [Suspect]
     Dosage: 125 MG/DAY
     Route: 042
     Dates: start: 20031002
  5. DEPAKENE [Suspect]
     Indication: CONVULSION
     Dosage: 1.2 G/DAY
     Route: 048
     Dates: start: 20031006, end: 20031009
  6. ALEVIATIN [Suspect]
     Dosage: 200 MG/DAY
     Route: 048
     Dates: start: 20031008, end: 20031009
  7. ISOZOL [Concomitant]
     Route: 042
     Dates: start: 20031001, end: 20031023

REACTIONS (16)
  - ALANINE AMINOTRANSFERASE INCREASED [None]
  - ASPARTATE AMINOTRANSFERASE INCREASED [None]
  - BLOOD LACTATE DEHYDROGENASE INCREASED [None]
  - BONE MARROW DISORDER [None]
  - DRUG HYPERSENSITIVITY [None]
  - GAMMA-GLUTAMYLTRANSFERASE INCREASED [None]
  - GRANULOCYTOPENIA [None]
  - HAEMODIALYSIS [None]
  - HAEMOGLOBIN DECREASED [None]
  - HEPATIC FUNCTION ABNORMAL [None]
  - HEPATOCELLULAR DAMAGE [None]
  - HYPERTHERMIA [None]
  - MULTI-ORGAN FAILURE [None]
  - PLATELET COUNT DECREASED [None]
  - SEPTIC SHOCK [None]
  - WHITE BLOOD CELL COUNT DECREASED [None]
